FAERS Safety Report 10451777 (Version 2)
Quarter: 2014Q4

REPORT INFORMATION
  Report Type: Report from Study
  Country: CN (occurrence: CN)
  Receive Date: 20140915
  Receipt Date: 20141103
  Transmission Date: 20150528
  Serious: Yes (Other)
  Sender: FDA-Public Use
  Company Number: CN-ROCHE-1461416

PATIENT
  Age: 51 Year
  Sex: Male

DRUGS (1)
  1. BEVACIZUMAB [Suspect]
     Active Substance: BEVACIZUMAB
     Indication: NON-SMALL CELL LUNG CANCER
     Dosage: 12 CYCLE
     Route: 065

REACTIONS (2)
  - Renal impairment [Recovered/Resolved]
  - Proteinuria [Recovered/Resolved]
